APPROVED DRUG PRODUCT: CLOBAZAM
Active Ingredient: CLOBAZAM
Strength: 10MG
Dosage Form/Route: TABLET;ORAL
Application: A209440 | Product #001
Applicant: TARO PHARMACEUTICAL INDUSTRIES LTD
Approved: Oct 22, 2018 | RLD: No | RS: No | Type: DISCN